FAERS Safety Report 6315559-7 (Version None)
Quarter: 2009Q3

REPORT INFORMATION
  Report Type: 
  Country: None (occurrence: None)
  Receive Date: 20090818
  Receipt Date: 20090730
  Transmission Date: 20100115
  Serious: Yes (Hospitalization)
  Sender: FDA-Public Use
  Company Number: 002439

PATIENT
  Age: 60 Year
  Sex: Male
  Weight: 104 kg

DRUGS (5)
  1. PEGAPTANIB SODIUM: PLACEBO (CODE NOT BROKEN) UNKNOWN [Suspect]
     Indication: DIABETIC RETINAL OEDEMA
     Dosage: 1 EVERY SIX WEEKS, INTRAOCULAR
     Route: 031
     Dates: start: 20071022
  2. ASPIRIN [Concomitant]
  3. HUMULIN (INSULIN HUMAN, INSULIN ISOPHANEK HUMAN BIOSYNTHETIC) [Concomitant]
  4. CANDESARTAN CILEXETIL [Concomitant]
  5. ATORVASTATIN CALCIUM [Concomitant]

REACTIONS (4)
  - CELLULITIS [None]
  - ESCHERICHIA INFECTION [None]
  - GANGRENE [None]
  - OSTEOMYELITIS [None]
